FAERS Safety Report 4283319-7 (Version None)
Quarter: 2004Q1

REPORT INFORMATION
  Report Type: 
  Country: None (occurrence: None)
  Receive Date: 20040129
  Receipt Date: 20040119
  Transmission Date: 20041129
  Serious: Yes (Death, Life-Threatening)
  Sender: FDA-Public Use
  Company Number: 2003SE05242

PATIENT
  Age: 79 Year
  Sex: Male
  Weight: 58 kg

DRUGS (11)
  1. ROSUVASTATIN [Suspect]
     Indication: HYPERCHOLESTEROLAEMIA
     Dosage: 40 MG QD PO
     Route: 048
     Dates: start: 20031004, end: 20031106
  2. ARTHROTEC [Suspect]
     Indication: BACK PAIN
     Dosage: 50 MG TID
     Dates: start: 20031029, end: 20031106
  3. ATENOLOL [Concomitant]
  4. PLAVIX [Concomitant]
  5. ASPIRIN [Concomitant]
  6. LOMIR [Concomitant]
  7. HYDROCOBAMINE [Concomitant]
  8. TEMAZEPAM [Concomitant]
  9. NO MATCH [Concomitant]
  10. LORAZEPAM [Concomitant]
  11. FUROSEMIDE [Concomitant]

REACTIONS (12)
  - BACK PAIN [None]
  - BLOOD CREATINE PHOSPHOKINASE INCREASED [None]
  - BRONCHOPNEUMONIA [None]
  - DYSARTHRIA [None]
  - FALL [None]
  - HEART RATE DECREASED [None]
  - HYPOTENSION [None]
  - MUSCULAR WEAKNESS [None]
  - RENAL FAILURE [None]
  - SEPTIC SHOCK [None]
  - SOMNOLENCE [None]
  - THORACIC VERTEBRAL FRACTURE [None]
